FAERS Safety Report 4892293-1 (Version None)
Quarter: 2006Q1

REPORT INFORMATION
  Report Type: 
  Country: None (occurrence: None)
  Receive Date: 20060125
  Receipt Date: 20060125
  Transmission Date: 20060701
  Serious: Yes (Hospitalization)
  Sender: FDA-Public Use
  Company Number: None

PATIENT
  Sex: Female
  Weight: 98.6 kg

DRUGS (12)
  1. WARFARIN [Suspect]
     Indication: DEEP VEIN THROMBOSIS
     Dosage: 7.5 MG DAILY ORAL
     Route: 048
     Dates: start: 20050822, end: 20050911
  2. ENOXAPARIN SODIUM [Suspect]
     Indication: DEEP VEIN THROMBOSIS
     Dosage: 100MG BID SQ
     Route: 058
     Dates: start: 20050901
  3. HUMALOG [Concomitant]
  4. ASPIRIN [Concomitant]
  5. ENALAPRIL [Concomitant]
  6. LASIX [Concomitant]
  7. CLONIDINE [Concomitant]
  8. METOPROLOL [Concomitant]
  9. CIPRO [Concomitant]
  10. AVANDIA [Concomitant]
  11. ALBUTEROL SULFATE AUTOHALER [Concomitant]
  12. LOVASTATIN [Concomitant]

REACTIONS (2)
  - OEDEMA PERIPHERAL [None]
  - PAIN IN EXTREMITY [None]
